FAERS Safety Report 8087615-7 (Version None)
Quarter: 2012Q1

REPORT INFORMATION
  Report Type: 
  Country: None (occurrence: None)
  Receive Date: 20120128
  Receipt Date: 20110523
  Transmission Date: 20120608
  Serious: No
  Sender: FDA-Public Use
  Company Number: US-ABBOTT-11P-163-0728543-00

PATIENT
  Sex: Female
  Weight: 109.41 kg

DRUGS (7)
  1. FOLIC ACID [Concomitant]
     Indication: PSORIATIC ARTHROPATHY
  2. HYDROXYCHLOROQUINE SULFATE [Concomitant]
     Indication: PSORIATIC ARTHROPATHY
  3. UNKNOWN TOPICAL CREAM [Concomitant]
     Indication: PRODUCT USED FOR UNKNOWN INDICATION
  4. METHOTREXATE [Concomitant]
     Indication: PSORIATIC ARTHROPATHY
  5. HUMIRA [Suspect]
     Indication: PSORIATIC ARTHROPATHY
     Route: 058
     Dates: start: 20110302
  6. PREMARIN [Concomitant]
     Indication: MENOPAUSE
  7. UNKNOWN METERED-DOSE INHALER [Concomitant]
     Indication: ASTHMA

REACTIONS (5)
  - INJECTION SITE PAPULE [None]
  - INJECTION SITE WARMTH [None]
  - INJECTION SITE ERYTHEMA [None]
  - INJECTION SITE PRURITUS [None]
  - SINUSITIS [None]
